FAERS Safety Report 5085749-2 (Version None)
Quarter: 2006Q3

REPORT INFORMATION
  Report Type: 
  Country: None (occurrence: None)
  Receive Date: 20060817
  Receipt Date: 20060714
  Transmission Date: 20061208
  Serious: Yes (Other)
  Sender: FDA-Public Use
  Company Number: 2006082119

PATIENT
  Age: 9 Year
  Sex: Female

DRUGS (6)
  1. DOXORUBICIN HCL [Suspect]
     Indication: NEPHROBLASTOMA
  2. CARBOPLATIN [Suspect]
     Indication: NEPHROBLASTOMA
  3. ETOPOSIDE [Suspect]
     Indication: NEPHROBLASTOMA
  4. CYCLOPHOSPHAMIDE [Suspect]
     Indication: NEPHROBLASTOMA
  5. VINCRISTINE [Suspect]
     Indication: NEPHROBLASTOMA
  6. DACTINOMYCIN [Suspect]
     Indication: NEPHROBLASTOMA

REACTIONS (3)
  - NEOPLASM MALIGNANT [None]
  - RENAL CELL CARCINOMA STAGE UNSPECIFIED [None]
  - SOLITARY KIDNEY SECONDARY [None]
